FAERS Safety Report 8539238-0 (Version None)
Quarter: 2012Q3

REPORT INFORMATION
  Report Type: 
  Country: None (occurrence: None)
  Receive Date: 20120726
  Receipt Date: 20120717
  Transmission Date: 20120928
  Serious: Yes (Death, Hospitalization, Other)
  Sender: FDA-Public Use
  Company Number: GB-JNJFOC-20120709327

PATIENT
  Age: 75 Year
  Sex: Male
  Weight: 82 kg

DRUGS (8)
  1. ENOXAPARIN SODIUM [Suspect]
     Indication: HIP ARTHROPLASTY
     Dates: start: 20111226
  2. ENOXAPARIN SODIUM [Suspect]
     Dates: start: 20111229
  3. BENDROFLUAZIDE [Concomitant]
  4. XARELTO [Suspect]
     Indication: THROMBOSIS PROPHYLAXIS
     Route: 065
     Dates: start: 20111208, end: 20111225
  5. XARELTO [Suspect]
     Indication: HIP ARTHROPLASTY
     Route: 065
     Dates: start: 20111208, end: 20111225
  6. AMLODIPINE [Concomitant]
  7. ENOXAPARIN SODIUM [Suspect]
  8. PERINDOPRIL ERBUMINE [Concomitant]

REACTIONS (6)
  - MUCOSAL HAEMORRHAGE [None]
  - PURPURA [None]
  - CIRCULATORY COLLAPSE [None]
  - GINGIVAL BLEEDING [None]
  - RECTAL HAEMORRHAGE [None]
  - HAEMORRHAGE INTRACRANIAL [None]
